FAERS Safety Report 6053853-8 (Version None)
Quarter: 2009Q1

REPORT INFORMATION
  Report Type: 
  Country: None (occurrence: None)
  Receive Date: 20090122
  Receipt Date: 20090113
  Transmission Date: 20090719
  Serious: Yes (Hospitalization)
  Sender: FDA-Public Use
  Company Number: 2008-187392-NL

PATIENT
  Age: 48 Year
  Sex: Female

DRUGS (10)
  1. MIRTAZAPINE [Suspect]
     Indication: DEPRESSION
     Dosage: 15 MG/30 MG/45 MG/60 MG/ 45 MG/30 MG/15 MG
     Route: 048
     Dates: start: 20071001, end: 20071001
  2. MIRTAZAPINE [Suspect]
     Indication: DEPRESSION
     Dosage: 15 MG/30 MG/45 MG/60 MG/ 45 MG/30 MG/15 MG
     Route: 048
     Dates: start: 20071002, end: 20071007
  3. MIRTAZAPINE [Suspect]
     Indication: DEPRESSION
     Dosage: 15 MG/30 MG/45 MG/60 MG/ 45 MG/30 MG/15 MG
     Route: 048
     Dates: start: 20071008, end: 20071209
  4. MIRTAZAPINE [Suspect]
     Indication: DEPRESSION
     Dosage: 15 MG/30 MG/45 MG/60 MG/ 45 MG/30 MG/15 MG
     Route: 048
     Dates: start: 20071210, end: 20080129
  5. MIRTAZAPINE [Suspect]
     Indication: DEPRESSION
     Dosage: 15 MG/30 MG/45 MG/60 MG/ 45 MG/30 MG/15 MG
     Route: 048
     Dates: start: 20080130, end: 20080218
  6. MIRTAZAPINE [Suspect]
     Indication: DEPRESSION
     Dosage: 15 MG/30 MG/45 MG/60 MG/ 45 MG/30 MG/15 MG
     Route: 048
     Dates: start: 20080219, end: 20080220
  7. MIRTAZAPINE [Suspect]
     Indication: DEPRESSION
     Dosage: 15 MG/30 MG/45 MG/60 MG/ 45 MG/30 MG/15 MG
     Route: 048
     Dates: start: 20080221, end: 20080221
  8. CLOZAPINE [Suspect]
     Dosage: 600 MG
     Route: 048
  9. LORAZEPAM [Suspect]
     Dosage: 2.5 MG
     Route: 048
  10. HALOPERIDOL [Suspect]
     Dosage: 15 MG
     Route: 048
     Dates: start: 20080208

REACTIONS (3)
  - EMOTIONAL DISTRESS [None]
  - HEPATIC STEATOSIS [None]
  - MENTAL DISORDER [None]
